FAERS Safety Report 23972695 (Version 1)
Quarter: 2024Q2

REPORT INFORMATION
  Report Type: Spontaneous
  Country: US (occurrence: US)
  Receive Date: 20240613
  Receipt Date: 20240613
  Transmission Date: 20240716
  Serious: No
  Sender: FDA-Public Use
  Company Number: US-PFIZER INC-PV202400076788

PATIENT
  Age: 69 Year
  Sex: Female

DRUGS (7)
  1. IBRANCE [Suspect]
     Active Substance: PALBOCICLIB
     Dosage: 75 MG, DAILY ON DAYS 1-21 OF CYCLE THEN 7 DAYS OFF
     Route: 048
     Dates: start: 20231002, end: 20240610
  2. IBRANCE [Suspect]
     Active Substance: PALBOCICLIB
     Dosage: UNK (CYCLE ON 5/8)
  3. IBRANCE [Suspect]
     Active Substance: PALBOCICLIB
     Dosage: UNK (2 WEEKS OF 3-WEEK ON CYCLE)
  4. FULVESTRANT [Concomitant]
     Active Substance: FULVESTRANT
     Dosage: UNK (250MG/5ML INJ. 2X5ML)
  5. ATORVASTATIN [Concomitant]
     Active Substance: ATORVASTATIN
     Dosage: UNK
  6. BISOPROLOL FUMARATE\HYDROCHLOROTHIAZIDE [Concomitant]
     Active Substance: BISOPROLOL FUMARATE\HYDROCHLOROTHIAZIDE
     Dosage: UNK
  7. CALCIUM\VITAMIN D [Concomitant]
     Active Substance: CALCIUM\VITAMIN D
     Dosage: UNK (1200MG SOFTGEL CAPS)

REACTIONS (2)
  - Fatigue [Recovered/Resolved]
  - Off label use [Unknown]
